FAERS Safety Report 24593039 (Version 1)
Quarter: 2024Q4

REPORT INFORMATION
  Report Type: Spontaneous
  Country: US (occurrence: None)
  Receive Date: 20241107
  Receipt Date: 20241107
  Transmission Date: 20250115
  Serious: Yes (Other)
  Sender: Public
  Company Number: None

PATIENT
  Age: 67 Year
  Sex: Female
  Weight: 85.05 kg

DRUGS (10)
  1. TIZANIDINE [Suspect]
     Active Substance: TIZANIDINE
     Indication: Muscle spasms
     Dosage: OTHER QUANTITY : 1 CAPSULE(S);?FREQUENCY : EVERY 8 HOURS;?
     Route: 048
     Dates: start: 20240504, end: 20240507
  2. TIZANIDINE [Suspect]
     Active Substance: TIZANIDINE
     Indication: Joint injury
  3. Alphagan Eye Drops [Concomitant]
  4. ELIQUIS [Concomitant]
     Active Substance: APIXABAN
  5. Paroxotene [Concomitant]
  6. Biotiin [Concomitant]
  7. Collagen Powder [Concomitant]
  8. MINERALS\VITAMINS [Concomitant]
     Active Substance: MINERALS\VITAMINS
  9. Emergency Chewable [Concomitant]
  10. VITAMIN D [Concomitant]
     Active Substance: VITAMIN D NOS

REACTIONS (3)
  - Hallucination, visual [None]
  - Restlessness [None]
  - Therapy cessation [None]

NARRATIVE: CASE EVENT DATE: 20240505
